FAERS Safety Report 11447431 (Version 2)
Quarter: 2017Q2

REPORT INFORMATION
  Report Type: Spontaneous
  Country: US (occurrence: US)
  Receive Date: 20150902
  Receipt Date: 20170630
  Transmission Date: 20170829
  Serious: No
  Sender: FDA-Public Use
  Company Number: US-JNJFOC-20150722523

PATIENT
  Age: 11 Year
  Sex: Male

DRUGS (1)
  1. RISPERDAL [Suspect]
     Active Substance: RISPERIDONE
     Indication: PRODUCT USED FOR UNKNOWN INDICATION
     Route: 048
     Dates: start: 200401, end: 200402

REACTIONS (4)
  - Overweight [Unknown]
  - Gynaecomastia [Unknown]
  - Emotional disorder [Unknown]
  - Akathisia [Unknown]

NARRATIVE: CASE EVENT DATE: 20061119
